FAERS Safety Report 12449623 (Version 1)
Quarter: 2016Q2

REPORT INFORMATION
  Report Type: Spontaneous
  Country: IT (occurrence: IT)
  Receive Date: 20160609
  Receipt Date: 20160609
  Transmission Date: 20160815
  Serious: Yes (Hospitalization)
  Sender: FDA-Public Use
  Company Number: IT-ROCHE-1771447

PATIENT
  Age: 73 Year
  Sex: Male

DRUGS (7)
  1. TACHIPIRINA [Suspect]
     Active Substance: ACETAMINOPHEN
     Indication: PRODUCT USED FOR UNKNOWN INDICATION
     Dosage: ^500 MG TABLETS^ 10 TABLETS
     Route: 048
     Dates: start: 20160414, end: 20160414
  2. ANANASE [Suspect]
     Active Substance: BROMELAINS
     Indication: PRODUCT USED FOR UNKNOWN INDICATION
     Dosage: ^40 MG COATED TABLETS^ 20 COATED TABLETS
     Route: 048
     Dates: start: 20160414, end: 20160414
  3. VALIUM [Suspect]
     Active Substance: DIAZEPAM
     Indication: PRODUCT USED FOR UNKNOWN INDICATION
     Route: 048
     Dates: start: 20160414, end: 20160414
  4. LANSOX [Suspect]
     Active Substance: LANSOPRAZOLE
     Indication: PRODUCT USED FOR UNKNOWN INDICATION
     Dosage: ^30 MG HARD CAPSULES^ 14 CAPSULES
     Route: 048
     Dates: start: 20160414, end: 20160414
  5. LOBIVON [Suspect]
     Active Substance: NEBIVOLOL HYDROCHLORIDE
     Indication: PRODUCT USED FOR UNKNOWN INDICATION
     Dosage: 28 TABLETS 5 MG
     Route: 048
     Dates: start: 20160414, end: 20160414
  6. METRONIDAZOLE. [Suspect]
     Active Substance: METRONIDAZOLE
     Indication: PRODUCT USED FOR UNKNOWN INDICATION
     Route: 048
     Dates: start: 20160414, end: 20160414
  7. TACHIPIRINA [Suspect]
     Active Substance: ACETAMINOPHEN
     Indication: COMPLETED SUICIDE

REACTIONS (3)
  - Intentional self-injury [Unknown]
  - Suicide attempt [Unknown]
  - Agitation [Unknown]

NARRATIVE: CASE EVENT DATE: 20160414
